FAERS Safety Report 24311741 (Version 2)
Quarter: 2024Q4

REPORT INFORMATION
  Report Type: Spontaneous
  Country: JP (occurrence: JP)
  Receive Date: 20240912
  Receipt Date: 20241025
  Transmission Date: 20250114
  Serious: Yes (Other)
  Sender: ROCHE
  Company Number: JP-CHUGAI-2024030621AA

PATIENT
  Age: 87 Year
  Sex: Male
  Weight: 55 kg

DRUGS (4)
  1. TECENTRIQ [Suspect]
     Active Substance: ATEZOLIZUMAB
     Indication: Hepatocellular carcinoma
     Dosage: 1200 MILLIGRAM
     Route: 042
     Dates: start: 20231102, end: 20240627
  2. AVASTIN [Suspect]
     Active Substance: BEVACIZUMAB
     Indication: Hepatocellular carcinoma
     Dosage: 825 MILLIGRAM
     Route: 042
     Dates: start: 20231102, end: 20240627
  3. PREDONINE [Concomitant]
     Active Substance: PREDNISOLONE
     Dosage: 30 UNK
     Route: 065
  4. PREDONINE [Concomitant]
     Active Substance: PREDNISOLONE
     Dosage: 15 UNK
     Route: 065

REACTIONS (1)
  - Interstitial lung disease [Recovering/Resolving]

NARRATIVE: CASE EVENT DATE: 20240501
